FAERS Safety Report 7471390-0 (Version None)
Quarter: 2011Q2

REPORT INFORMATION
  Report Type: 
  Country: None (occurrence: None)
  Receive Date: 20110510
  Receipt Date: 20110507
  Transmission Date: 20111010
  Serious: Yes (Hospitalization)
  Sender: FDA-Public Use
  Company Number: US-BRISTOL-MYERS SQUIBB COMPANY-15667983

PATIENT
  Age: 68 Year
  Sex: Male

DRUGS (14)
  1. ASPIRIN [Concomitant]
     Indication: PROPHYLAXIS
     Route: 048
     Dates: start: 20060101, end: 20110222
  2. MULTI-VITAMIN [Concomitant]
     Indication: MEDICAL DIET
     Dosage: 1DF:TAB
     Route: 048
  3. PREDNISONE [Concomitant]
     Indication: DIARRHOEA
     Route: 048
     Dates: start: 20110409
  4. METFORMIN HCL [Concomitant]
     Indication: DIABETES MELLITUS
     Route: 048
     Dates: start: 20070101
  5. NIFEDIPINE [Concomitant]
     Indication: HYPERTENSION
     Route: 048
     Dates: start: 20090506
  6. VITAMIN B6 [Concomitant]
     Indication: MEDICAL DIET
     Route: 048
     Dates: start: 20090206
  7. LISINOPRIL AND HYDROCHLOROTHIAZIDE [Concomitant]
     Indication: HYPERTENSION
     Dosage: 1 DF=25/25(2) UNITS NOS 40
     Route: 048
     Dates: start: 20090304
  8. DICLOFENAC [Concomitant]
     Route: 048
     Dates: start: 20101201
  9. FISH OIL [Concomitant]
     Indication: MEDICAL DIET
     Route: 048
  10. SIMVASTATIN [Concomitant]
     Indication: HYPERCHOLESTEROLAEMIA
     Route: 048
     Dates: start: 20100101
  11. PRILOSEC [Concomitant]
     Indication: DYSPEPSIA
     Route: 048
     Dates: start: 20090209
  12. METAMUCIL-2 [Concomitant]
     Indication: CONSTIPATION
  13. YERVOY [Suspect]
     Indication: MALIGNANT MELANOMA
     Dosage: STRENGTH:10MG/KG
     Route: 042
     Dates: start: 20071026, end: 20110322
  14. VITAMIN B-12 [Concomitant]
     Indication: MEDICAL DIET
     Route: 048
     Dates: start: 20090206

REACTIONS (2)
  - COLITIS [None]
  - GASTROINTESTINAL HAEMORRHAGE [None]
